FAERS Safety Report 6510712-1 (Version None)
Quarter: 2009Q4

REPORT INFORMATION
  Report Type: 
  Country: None (occurrence: None)
  Receive Date: 20091222
  Receipt Date: 20091021
  Transmission Date: 20100525
  Serious: No
  Sender: FDA-Public Use
  Company Number: US-ASTRAZENECA-2009SE21747

PATIENT
  Age: 64 Year
  Sex: Female
  Weight: 150 kg

DRUGS (6)
  1. CRESTOR [Suspect]
     Indication: BLOOD CHOLESTEROL INCREASED
     Route: 048
     Dates: start: 20071021
  2. ACTONEL [Concomitant]
  3. BABY ASPIRIN [Concomitant]
  4. CALCIUM [Concomitant]
  5. CONCOR [Concomitant]
  6. METFORMIN HCL [Concomitant]

REACTIONS (3)
  - BACK PAIN [None]
  - MUSCULOSKELETAL PAIN [None]
  - PAIN IN EXTREMITY [None]
